FAERS Safety Report 11116595 (Version 3)
Quarter: 2015Q3

REPORT INFORMATION
  Report Type: Spontaneous
  Country: BR (occurrence: BR)
  Receive Date: 20150515
  Receipt Date: 20150701
  Transmission Date: 20151125
  Serious: Yes (Death)
  Sender: FDA-Public Use
  Company Number: BR-ELI_LILLY_AND_COMPANY-BR201505001326

PATIENT
  Age: 83 Year
  Sex: Female
  Weight: 56 kg

DRUGS (18)
  1. ZOLPIDEM [Concomitant]
     Active Substance: ZOLPIDEM\ZOLPIDEM TARTRATE
     Dosage: 10 MG, UNKNOWN
     Route: 065
  2. ALOPURINOL [Concomitant]
     Active Substance: ALLOPURINOL
     Dosage: 300 MG, UNKNOWN
     Route: 065
  3. ATORVASTATINA [Concomitant]
     Active Substance: ATORVASTATIN
     Dosage: 10 MG, UNKNOWN
     Route: 065
  4. ESOMEPRAZOL                        /01479301/ [Concomitant]
     Active Substance: ESOMEPRAZOLE
     Dosage: 40 MG, UNKNOWN
     Route: 065
  5. DIGESAN                            /00576701/ [Concomitant]
     Dosage: 10 MG, UNKNOWN
     Route: 065
  6. CIPROFLOXACINO                     /00697202/ [Concomitant]
     Dosage: 400 MG, UNKNOWN
     Route: 065
  7. HIDANTAL [Concomitant]
     Active Substance: PHENYTOIN SODIUM
     Dosage: 100 MG, UNKNOWN
     Route: 065
  8. DIMORF [Concomitant]
     Active Substance: MORPHINE SULFATE
     Dosage: UNK, UNKNOWN
     Route: 065
  9. PIPERACILINA + TAZOBACTAM [Concomitant]
     Dosage: 4.5 G, UNKNOWN
     Route: 065
  10. PURAN [Concomitant]
     Active Substance: LEVOTHYROXINE SODIUM
     Dosage: UNK, UNKNOWN
     Route: 065
  11. VASOGARD [Concomitant]
     Active Substance: CILOSTAZOL
     Dosage: 100 MG, UNKNOWN
     Route: 065
  12. AAS [Concomitant]
     Active Substance: ASPIRIN
     Dosage: 100 MG, UNKNOWN
     Route: 065
  13. CORTISONAL                         /00028601/ [Concomitant]
     Dosage: 50 MG, UNKNOWN
     Route: 065
  14. DONAREN [Concomitant]
     Active Substance: TRAZODONE HYDROCHLORIDE
     Dosage: 50 MG, UNKNOWN
     Route: 065
  15. ZYPREXA [Suspect]
     Active Substance: OLANZAPINE
     Indication: PRODUCT USED FOR UNKNOWN INDICATION
     Dosage: 3 MG, UNKNOWN
     Route: 050
  16. ERANZ [Concomitant]
     Active Substance: DONEPEZIL HYDROCHLORIDE
     Dosage: 5 MG, QD
     Route: 065
  17. LACTULONA [Concomitant]
     Dosage: UNK, UNKNOWN
     Route: 065
  18. TYLENOL [Concomitant]
     Active Substance: ACETAMINOPHEN
     Dosage: UNK, UNKNOWN
     Route: 065

REACTIONS (4)
  - Cardio-respiratory arrest [Fatal]
  - Haematoma [Unknown]
  - Incorrect route of drug administration [Unknown]
  - Oedema peripheral [Unknown]

NARRATIVE: CASE EVENT DATE: 20150317
